FAERS Safety Report 22388198 (Version 1)
Quarter: 2023Q2

REPORT INFORMATION
  Report Type: Spontaneous
  Country: US (occurrence: None)
  Receive Date: 20230529
  Receipt Date: 20230529
  Transmission Date: 20230721
  Serious: Yes (Disabling)
  Sender: FDA-Public Use
  Company Number: None

PATIENT
  Age: 32 Year
  Sex: Female
  Weight: 51.75 kg

DRUGS (3)
  1. .DELTA.8-TETRAHYDROCANNABINOL\HERBALS [Suspect]
     Active Substance: .DELTA.8-TETRAHYDROCANNABINOL\HERBALS
     Dosage: OTHER QUANTITY : 1 GUMMY;?OTHER FREQUENCY : 1 TIME;?
     Route: 048
     Dates: start: 20210423, end: 20210423
  2. VITAMINS [Concomitant]
     Active Substance: VITAMINS
  3. FISH OIL [Concomitant]
     Active Substance: FISH OIL

REACTIONS (16)
  - Hallucination, visual [None]
  - Dissociation [None]
  - Vomiting [None]
  - Paranoia [None]
  - Palpitations [None]
  - Myocardial infarction [None]
  - Speech disorder [None]
  - Monoplegia [None]
  - Post-traumatic stress disorder [None]
  - Chest pain [None]
  - Impaired quality of life [None]
  - Insomnia [None]
  - Dyspepsia [None]
  - Arrhythmia [None]
  - Flashback [None]
  - Panic attack [None]

NARRATIVE: CASE EVENT DATE: 20210423
